FAERS Safety Report 5196025-1 (Version None)
Quarter: 2007Q1

REPORT INFORMATION
  Report Type: 
  Country: None (occurrence: None)
  Receive Date: 20070102
  Receipt Date: 20060713
  Transmission Date: 20070707
  Serious: Yes (Hospitalization)
  Sender: FDA-Public Use
  Company Number: KR-BAXTER-2006BH011795

PATIENT
  Age: 46 Year
  Sex: Male

DRUGS (2)
  1. FLAGYL I.V. RTU [Suspect]
     Indication: CHOLANGITIS ACUTE
     Route: 042
  2. CEFOTAXIME [Concomitant]
     Indication: CHOLANGITIS ACUTE
     Route: 042

REACTIONS (3)
  - APALLIC SYNDROME [None]
  - COMA [None]
  - DEPRESSED LEVEL OF CONSCIOUSNESS [None]
